FAERS Safety Report 5752293-6 (Version None)
Quarter: 2008Q2

REPORT INFORMATION
  Report Type: 
  Country: None (occurrence: None)
  Receive Date: 20080527
  Receipt Date: 20080513
  Transmission Date: 20081010
  Serious: Yes (Death, Life-Threatening, Hospitalization)
  Sender: FDA-Public Use
  Company Number: CLOF-10718

PATIENT
  Age: 71 Year
  Sex: Male

DRUGS (9)
  1. CLOFARABINE (CLOFARABINE) SOLUTION FOR INFUSION [Suspect]
     Indication: ACUTE MYELOID LEUKAEMIA
     Dosage: 30 MG/M2, QDX5, INTRAVENOUS
     Route: 042
     Dates: start: 20071005, end: 20071009
  2. ACETAMINOPHEN [Concomitant]
  3. BENADRYL [Concomitant]
  4. ALLOPURINOL [Concomitant]
  5. CIPROFLOXACIN [Concomitant]
  6. HYDRALAZINE HCL [Concomitant]
  7. HYDREA [Concomitant]
  8. LIPITOR [Concomitant]
  9. ASPIRIN [Concomitant]

REACTIONS (17)
  - ABDOMINAL DISTENSION [None]
  - ASPERGILLOSIS [None]
  - BLISTER [None]
  - CATHETER RELATED INFECTION [None]
  - DELIRIUM [None]
  - EYELID PTOSIS [None]
  - FEBRILE NEUTROPENIA [None]
  - HYPERDYNAMIC PRECORDIUM [None]
  - LOBAR PNEUMONIA [None]
  - NECROSIS ISCHAEMIC [None]
  - OEDEMA PERIPHERAL [None]
  - PAIN [None]
  - RENAL FAILURE ACUTE [None]
  - SINUSITIS FUNGAL [None]
  - STAPHYLOCOCCAL INFECTION [None]
  - TACHYCARDIA [None]
  - TACHYPNOEA [None]
